FAERS Safety Report 8885920 (Version 1)
Quarter: 2012Q4

REPORT INFORMATION
  Report Type: 
  Country: US (occurrence: US)
  Receive Date: 20121105
  Receipt Date: 20121105
  Transmission Date: 20130627
  Serious: No
  Sender: FDA-Public Use
  Company Number: US-PFIZER INC-2012269483

PATIENT
  Sex: Female

DRUGS (2)
  1. MISOPROSTOL [Suspect]
     Dosage: 200 mg, UNK
  2. DICLOFENAC SODIUM [Suspect]
     Dosage: 75 mg, UNK

REACTIONS (5)
  - Abdominal distension [Unknown]
  - Diarrhoea [Unknown]
  - Abdominal pain upper [Unknown]
  - Dyspepsia [Unknown]
  - Faeces discoloured [Unknown]
